FAERS Safety Report 9647875 (Version 1)
Quarter: 2013Q4

REPORT INFORMATION
  Report Type: Spontaneous
  Country: US (occurrence: US)
  Receive Date: 20131028
  Receipt Date: 20131028
  Transmission Date: 20140711
  Serious: No
  Sender: FDA-Public Use
  Company Number: US-PFIZER INC-2013302618

PATIENT
  Sex: Male

DRUGS (1)
  1. ADVIL [Suspect]
     Indication: PAIN
     Dosage: UNK, TWO TIMES A DAY
     Dates: start: 20131014, end: 20131021

REACTIONS (1)
  - Drug ineffective [Unknown]
